FAERS Safety Report 5317827-4 (Version None)
Quarter: 2007Q2

REPORT INFORMATION
  Report Type: 
  Country: None (occurrence: None)
  Receive Date: 20070430
  Receipt Date: 20070423
  Transmission Date: 20071010
  Serious: Yes (Hospitalization)
  Sender: FDA-Public Use
  Company Number: 2006-151823-NL

PATIENT
  Age: 58 Year
  Sex: Female

DRUGS (5)
  1. DEXAMETHASONE 0.5MG TAB [Suspect]
     Indication: PROPHYLAXIS OF NAUSEA AND VOMITING
     Dosage: INTRAVENOUS (NOS)
     Route: 042
     Dates: start: 20061116
  2. ONDANSETRON HCL [Concomitant]
  3. SODIUM CHLORIDE [Concomitant]
  4. DOXORUBICIN HCL [Concomitant]
  5. CYCLOPHOSPHAMIDE [Concomitant]

REACTIONS (1)
  - FEBRILE NEUTROPENIA [None]
